FAERS Safety Report 13133063 (Version 1)
Quarter: 2017Q1

REPORT INFORMATION
  Report Type: Spontaneous
  Country: US (occurrence: US)
  Receive Date: 20170118
  Receipt Date: 20170118
  Transmission Date: 20170428
  Serious: Yes (Hospitalization)
  Sender: FDA-Public Use
  Company Number: None

PATIENT
  Age: 77 Year

DRUGS (1)
  1. STIVARGA [Suspect]
     Active Substance: REGORAFENIB
     Indication: CHRONIC HEPATITIS C
     Dosage: QD FOR 21 DAYS
     Route: 048
     Dates: end: 20170116

REACTIONS (5)
  - Vomiting [None]
  - Diarrhoea [None]
  - Rash [None]
  - Asthenia [None]
  - Nausea [None]

NARRATIVE: CASE EVENT DATE: 20170116
